FAERS Safety Report 19055710 (Version 14)
Quarter: 2025Q1

REPORT INFORMATION
  Report Type: Spontaneous
  Country: JP (occurrence: JP)
  Receive Date: 20210324
  Receipt Date: 20250324
  Transmission Date: 20250408
  Serious: Yes (Hospitalization, Other)
  Sender: JOHNSON AND JOHNSON
  Company Number: JP-JNJFOC-A-CH2019-197447

PATIENT
  Age: 54 Year
  Sex: Female
  Weight: 38.3 kg

DRUGS (51)
  1. OPSUMIT [Suspect]
     Active Substance: MACITENTAN
     Indication: Pulmonary arterial hypertension
     Route: 048
     Dates: start: 20190605, end: 20190726
  2. OPSUMIT [Suspect]
     Active Substance: MACITENTAN
     Indication: Pulmonary hypertension
  3. EPOPROSTENOL [Suspect]
     Active Substance: EPOPROSTENOL
     Indication: Pulmonary arterial hypertension
     Route: 042
     Dates: start: 20070910
  4. EPOPROSTENOL [Suspect]
     Active Substance: EPOPROSTENOL
     Indication: Pulmonary hypertension
     Route: 042
  5. UPTRAVI [Suspect]
     Active Substance: SELEXIPAG
     Indication: Pulmonary arterial hypertension
     Route: 048
     Dates: start: 20171207, end: 20180207
  6. UPTRAVI [Suspect]
     Active Substance: SELEXIPAG
     Indication: Pulmonary hypertension
     Route: 048
     Dates: start: 20180208, end: 20180411
  7. UPTRAVI [Suspect]
     Active Substance: SELEXIPAG
     Route: 048
     Dates: start: 20180412, end: 20180509
  8. UPTRAVI [Suspect]
     Active Substance: SELEXIPAG
     Route: 048
     Dates: start: 20180510, end: 20180606
  9. UPTRAVI [Suspect]
     Active Substance: SELEXIPAG
     Route: 048
     Dates: start: 20180607, end: 20180912
  10. UPTRAVI [Suspect]
     Active Substance: SELEXIPAG
     Route: 048
     Dates: start: 20180913, end: 20181010
  11. UPTRAVI [Suspect]
     Active Substance: SELEXIPAG
     Route: 048
     Dates: start: 20181011, end: 20181107
  12. UPTRAVI [Suspect]
     Active Substance: SELEXIPAG
     Route: 048
     Dates: start: 20181108, end: 20190910
  13. UPTRAVI [Suspect]
     Active Substance: SELEXIPAG
     Route: 048
     Dates: start: 20190605, end: 20190726
  14. UPTRAVI [Suspect]
     Active Substance: SELEXIPAG
     Route: 048
     Dates: start: 20190530, end: 20190807
  15. UPTRAVI [Suspect]
     Active Substance: SELEXIPAG
     Route: 048
     Dates: end: 20190827
  16. UPTRAVI [Suspect]
     Active Substance: SELEXIPAG
     Route: 048
  17. TRACLEER [Suspect]
     Active Substance: BOSENTAN
     Indication: Pulmonary arterial hypertension
     Dosage: BOSENTAN HYDRATE:62.5MG
     Route: 048
  18. REVATIO [Suspect]
     Active Substance: SILDENAFIL CITRATE
     Indication: Pulmonary arterial hypertension
     Route: 048
     Dates: start: 20190530, end: 20190807
  19. BERAPROST [Suspect]
     Active Substance: BERAPROST
     Indication: Pulmonary arterial hypertension
     Route: 065
  20. EPOPROSTENOL [Concomitant]
     Active Substance: EPOPROSTENOL
     Indication: Pulmonary hypertension
     Route: 042
  21. BETAMETHASONE [Concomitant]
     Active Substance: BETAMETHASONE
     Indication: Systemic lupus erythematosus
     Route: 065
     Dates: start: 20110912
  22. BETAMETHASONE [Concomitant]
     Active Substance: BETAMETHASONE
     Route: 065
  23. REBAMIPIDE [Concomitant]
     Active Substance: REBAMIPIDE
     Indication: Chronic gastritis
     Route: 048
     Dates: start: 20190620, end: 20190804
  24. OXYGEN [Concomitant]
     Active Substance: OXYGEN
  25. RABEPRAZOLE SODIUM [Concomitant]
     Active Substance: RABEPRAZOLE SODIUM
     Indication: Gastritis prophylaxis
     Dosage: 1 DOSAGE FORM
     Route: 065
     Dates: start: 20070801
  26. PIMOBENDAN [Concomitant]
     Active Substance: PIMOBENDAN
     Indication: Right ventricular failure
     Route: 065
     Dates: start: 20110223
  27. PIMOBENDAN [Concomitant]
     Active Substance: PIMOBENDAN
     Route: 065
  28. PLAQUENIL [Concomitant]
     Active Substance: HYDROXYCHLOROQUINE SULFATE
     Indication: Systemic lupus erythematosus
     Route: 065
     Dates: start: 20161208
  29. MIZORIBINE [Concomitant]
     Active Substance: MIZORIBINE
     Indication: Systemic lupus erythematosus
     Route: 065
     Dates: start: 20141208
  30. MINODRONIC ACID [Concomitant]
     Active Substance: MINODRONIC ACID
     Indication: Osteoporosis
  31. MINODRONIC ACID [Concomitant]
     Active Substance: MINODRONIC ACID
     Indication: Prophylaxis
  32. VALPROATE SODIUM [Concomitant]
     Active Substance: VALPROATE SODIUM
     Indication: Temporal lobe epilepsy
     Dates: end: 20190930
  33. BIO-THREE [Concomitant]
     Active Substance: HERBALS
     Indication: Diarrhoea
     Dates: start: 20160201, end: 20191021
  34. UNSPECIFIED INGREDIENT [Concomitant]
     Active Substance: UNSPECIFIED INGREDIENT
     Indication: Ascites
  35. CARVEDILOL [Concomitant]
     Active Substance: CARVEDILOL
     Indication: Cardiac failure
     Route: 065
  36. BERAPROST SODIUM [Concomitant]
     Active Substance: BERAPROST SODIUM
     Indication: Pulmonary arterial hypertension
  37. BERAPROST SODIUM [Concomitant]
     Active Substance: BERAPROST SODIUM
     Indication: Pulmonary hypertension
  38. TOLVAPTAN [Concomitant]
     Active Substance: TOLVAPTAN
     Route: 065
  39. TOLVAPTAN [Concomitant]
     Active Substance: TOLVAPTAN
     Route: 065
  40. TOLVAPTAN [Concomitant]
     Active Substance: TOLVAPTAN
     Route: 065
  41. SPIRONOLACTONE [Concomitant]
     Active Substance: SPIRONOLACTONE
     Route: 065
  42. SPIRONOLACTONE [Concomitant]
     Active Substance: SPIRONOLACTONE
     Route: 065
  43. SPIRONOLACTONE [Concomitant]
     Active Substance: SPIRONOLACTONE
     Route: 065
  44. CYCLOPHOSPHAMIDE [Concomitant]
     Active Substance: CYCLOPHOSPHAMIDE
     Indication: Mixed connective tissue disease
  45. CYCLOPHOSPHAMIDE [Concomitant]
     Active Substance: CYCLOPHOSPHAMIDE
     Indication: Systemic lupus erythematosus
  46. MIZORIBINE [Concomitant]
     Active Substance: MIZORIBINE
     Indication: Systemic lupus erythematosus
  47. CARVEDILOL [Concomitant]
     Active Substance: CARVEDILOL
  48. METHYLPREDNISOLONE [Concomitant]
     Active Substance: METHYLPREDNISOLONE
     Indication: Systemic lupus erythematosus
     Route: 065
  49. CYCLOPHOSPHAMIDE [Concomitant]
     Active Substance: CYCLOPHOSPHAMIDE
     Indication: Systemic lupus erythematosus
     Route: 042
  50. HYDROXYCHLOROQUINE SULFATE [Concomitant]
     Active Substance: HYDROXYCHLOROQUINE SULFATE
  51. FUROSEMIDE [Concomitant]
     Active Substance: FUROSEMIDE

REACTIONS (11)
  - Ascites [Recovered/Resolved]
  - Vasodilatation [Recovered/Resolved]
  - Pulmonary oedema [Unknown]
  - Thrombocytopenia [Unknown]
  - Venous pressure increased [Recovered/Resolved]
  - Congestive hepatopathy [Unknown]
  - Shunt stenosis [Unknown]
  - Drug ineffective [Unknown]
  - Iron deficiency anaemia [Unknown]
  - Blood albumin decreased [Unknown]
  - Blood cholinesterase decreased [Unknown]

NARRATIVE: CASE EVENT DATE: 20190705
